FAERS Safety Report 5085992-2 (Version None)
Quarter: 2006Q3

REPORT INFORMATION
  Report Type: 
  Country: None (occurrence: None)
  Receive Date: 20060817
  Receipt Date: 20060801
  Transmission Date: 20061208
  Serious: Yes (Hospitalization)
  Sender: FDA-Public Use
  Company Number: DSA_28540_2006

PATIENT
  Age: 61 Year
  Sex: Male

DRUGS (4)
  1. TAVOR [Suspect]
     Dosage: 1 MG ONCE PO
     Route: 048
     Dates: start: 20060731, end: 20060731
  2. LYOGEN [Suspect]
     Dosage: 6 MG ONCE PO
     Route: 048
     Dates: start: 20060731, end: 20060731
  3. NEUROCIL [Suspect]
     Dosage: 50 MG ONCE PO
     Route: 048
     Dates: start: 20060731, end: 20060731
  4. SOLIAN [Suspect]
     Dosage: 800 MG ONCE PO
     Route: 048
     Dates: start: 20060731, end: 20060731

REACTIONS (3)
  - ACCIDENTAL OVERDOSE [None]
  - MEDICATION ERROR [None]
  - SOPOR [None]
